FAERS Safety Report 8240803-9 (Version None)
Quarter: 2012Q1

REPORT INFORMATION
  Report Type: 
  Country: None (occurrence: None)
  Receive Date: 20120328
  Receipt Date: 20120323
  Transmission Date: 20120608
  Serious: Yes (Life-Threatening)
  Sender: FDA-Public Use
  Company Number: PHHY2012FR026221

PATIENT
  Sex: Female

DRUGS (1)
  1. NEORAL [Suspect]
     Indication: IMMUNOSUPPRESSION
     Dates: start: 20111029, end: 20120115

REACTIONS (2)
  - CANDIDIASIS [None]
  - METABOLIC DISORDER [None]
